FAERS Safety Report 16754398 (Version 2)
Quarter: 2019Q3

REPORT INFORMATION
  Report Type: Spontaneous
  Country: US (occurrence: US)
  Receive Date: 20190829
  Receipt Date: 20190911
  Transmission Date: 20191005
  Serious: No
  Sender: FDA-Public Use
  Company Number: US-PFIZER INC-2019365518

PATIENT
  Sex: Female

DRUGS (1)
  1. DOCETAXEL. [Suspect]
     Active Substance: DOCETAXEL
     Dosage: UNK, CYCLIC (FOUR CYCLES WAS 140 MG/140 MG IN 264 ML)
     Route: 042

REACTIONS (2)
  - Skin discolouration [Recovering/Resolving]
  - Contusion [Recovering/Resolving]
